FAERS Safety Report 8925899 (Version 12)
Quarter: 2014Q2

REPORT INFORMATION
  Report Type: Spontaneous
  Country: IE (occurrence: IE)
  Receive Date: 20121126
  Receipt Date: 20140503
  Transmission Date: 20141212
  Serious: Yes (Life-Threatening, Hospitalization)
  Sender: FDA-Public Use
  Company Number: PHFR2012IE006002

PATIENT
  Age: 47 Year
  Sex: Female

DRUGS (11)
  1. CLOZARIL [Suspect]
     Indication: SCHIZOPHRENIA
     Dosage: UNK
     Route: 048
     Dates: start: 20010701
  2. CLOZARIL [Suspect]
     Dosage: 350 MG
     Dates: end: 20130115
  3. CLOZARIL [Suspect]
     Dosage: UNK
     Dates: end: 20130118
  4. CLOZARIL [Suspect]
     Dosage: 150 MG, DAILY
     Route: 048
     Dates: start: 20130121
  5. CLOZARIL [Suspect]
     Dosage: 300 MG, DAILY
     Route: 048
  6. VENLAFAXINE [Concomitant]
     Dosage: 37.5 MG, BID
  7. LIPITOR [Concomitant]
     Dosage: 10 MG, NIGHT
  8. EPILIM [Concomitant]
     Dosage: 12.5 MG, BID
  9. OMEPRAZOLE [Concomitant]
     Dosage: 40 MG, QD
  10. NUSEALS ASPIRN [Concomitant]
     Dosage: 75 MG, QD
  11. KEMADRIN [Concomitant]
     Dosage: 5 MG, QD

REACTIONS (11)
  - Colitis ischaemic [Recovering/Resolving]
  - Diarrhoea [Recovering/Resolving]
  - Rectal haemorrhage [Recovering/Resolving]
  - Body temperature increased [Recovered/Resolved]
  - Malaise [Recovering/Resolving]
  - Vomiting [Unknown]
  - Sepsis [Recovered/Resolved]
  - Somnolence [Recovered/Resolved]
  - Antipsychotic drug level increased [Recovered/Resolved]
  - Schizophrenia [Unknown]
  - Platelet count decreased [Not Recovered/Not Resolved]
